FAERS Safety Report 8345320-3 (Version None)
Quarter: 2012Q2

REPORT INFORMATION
  Report Type: 
  Country: None (occurrence: None)
  Receive Date: 20120504
  Receipt Date: 20120425
  Transmission Date: 20120825
  Serious: Yes (Hospitalization)
  Sender: FDA-Public Use
  Company Number: 2012SP012301

PATIENT
  Age: 42 Year
  Sex: Female
  Weight: 43 kg

DRUGS (5)
  1. ROCAIN [Concomitant]
  2. DEXAMETHASONE SODIUM PHOSPHATE [Suspect]
     Indication: BACK PAIN
     Dosage: 3.8 MG;IV
     Route: 042
     Dates: start: 20111224, end: 20111224
  3. LOXOMARIN (LOXOPROFEN SODIUM HYDRATE) [Concomitant]
  4. TIZANIDINE HCL [Concomitant]
  5. REBAMIPIDE [Concomitant]

REACTIONS (1)
  - ACUTE GENERALISED EXANTHEMATOUS PUSTULOSIS [None]
